FAERS Safety Report 6445234-X (Version None)
Quarter: 2009Q4

REPORT INFORMATION
  Report Type: 
  Country: None (occurrence: None)
  Receive Date: 20091118
  Receipt Date: 20091111
  Transmission Date: 20100525
  Serious: Yes (Other)
  Sender: FDA-Public Use
  Company Number: US-B.I. PHARMACEUTICALS,INC./RIDGEFIELD-2008-BP-02500BP

PATIENT
  Age: 66 Year
  Sex: Male

DRUGS (10)
  1. FLOMAX [Suspect]
     Indication: BENIGN PROSTATIC HYPERPLASIA
     Dosage: 0.4 MG
     Route: 048
     Dates: start: 20020101
  2. FLOMAX [Suspect]
     Indication: URINARY TRACT DISORDER
  3. SYNTHROID [Concomitant]
     Dosage: 88 MG
  4. TEGRETOL [Concomitant]
     Dosage: 1200 MG
  5. DEPAKOTE [Concomitant]
     Dosage: 500 MG
  6. MYCALIM [Concomitant]
  7. ALLEGRA [Concomitant]
  8. PRIMIDONE [Concomitant]
     Dosage: 750 MG
  9. MEPHOBARB [Concomitant]
  10. XYTAB ALLERGIES [Concomitant]

REACTIONS (5)
  - CATARACT [None]
  - DRUG INEFFECTIVE [None]
  - NOCTURIA [None]
  - POLLAKIURIA [None]
  - PROSTATE CANCER [None]
